FAERS Safety Report 11820912 (Version 1)
Quarter: 2015Q4

REPORT INFORMATION
  Report Type: Spontaneous
  Country: None (occurrence: None)
  Receive Date: 20151209
  Receipt Date: 20151209
  Transmission Date: 20160305
  Serious: Yes (Hospitalization, Disabling)
  Sender: FDA-Public Use
  Company Number: None

PATIENT
  Age: 54 Year
  Sex: Female
  Weight: 82 kg

DRUGS (6)
  1. PHARMAPRESS [Concomitant]
  2. CARLOC [Concomitant]
     Active Substance: CARVEDILOL
  3. BLOOD PRESSURE MACHINE AND SUGAR TESTING ADVICE [Concomitant]
  4. ROCEPHIN [Suspect]
     Active Substance: CEFTRIAXONE SODIUM
  5. METAMORPHIN [Concomitant]
  6. CARDEVOL [Concomitant]

REACTIONS (3)
  - Skin exfoliation [None]
  - Blister [None]
  - Pain of skin [None]

NARRATIVE: CASE EVENT DATE: 20151205
